FAERS Safety Report 9025480 (Version 2)
Quarter: 2013Q1

REPORT INFORMATION
  Report Type: Spontaneous
  Country: BR (occurrence: BR)
  Receive Date: 20130122
  Receipt Date: 20130219
  Transmission Date: 20140127
  Serious: Yes (Other)
  Sender: FDA-Public Use
  Company Number: BR-PFIZER INC-2013023985

PATIENT
  Age: 57 Year
  Sex: Female

DRUGS (4)
  1. LYRICA [Suspect]
     Indication: PAIN
     Dosage: 75 MG (ONE CAPUSLE), 2X/DAY
     Route: 048
     Dates: start: 20121020
  2. PURAN T4 [Concomitant]
     Indication: THYROID DISORDER
     Dosage: ONE TABLET, ONCE DAILY
  3. RYTMONORM [Concomitant]
     Indication: TACHYCARDIA
     Dosage: ONE CAPSULE, ONCE DAILY
  4. SIMVASTATIN [Concomitant]
     Indication: BLOOD CHOLESTEROL INCREASED
     Dosage: UNK

REACTIONS (1)
  - Intervertebral disc protrusion [Unknown]
